FAERS Safety Report 11876530 (Version 1)
Quarter: 2015Q4

REPORT INFORMATION
  Report Type: Spontaneous
  Country: US (occurrence: US)
  Receive Date: 20151229
  Receipt Date: 20151229
  Transmission Date: 20160305
  Serious: Yes (Hospitalization, Other)
  Sender: FDA-Public Use
  Company Number: US-BAYER-2015-493563

PATIENT
  Age: 33 Year
  Sex: Female
  Weight: 72.56 kg

DRUGS (13)
  1. DILANTIN [Concomitant]
     Active Substance: PHENYTOIN
     Indication: CONVULSION PROPHYLAXIS
  2. LIDOCAINE. [Concomitant]
     Active Substance: LIDOCAINE
     Dosage: 2 %, UNK
  3. YASMIN [Suspect]
     Active Substance: DROSPIRENONE\ETHINYL ESTRADIOL
  4. ZOSYN [Concomitant]
     Active Substance: PIPERACILLIN SODIUM\TAZOBACTAM SODIUM
  5. PROTONIX [Concomitant]
     Active Substance: PANTOPRAZOLE SODIUM
  6. YAZ [Suspect]
     Active Substance: DROSPIRENONE\ETHINYL ESTRADIOL
  7. VANCOMYCIN [Concomitant]
     Active Substance: VANCOMYCIN
  8. METRONIDAZOLE. [Concomitant]
     Active Substance: METRONIDAZOLE
  9. REMERON [Concomitant]
     Active Substance: MIRTAZAPINE
  10. AMPICILLIN [Concomitant]
     Active Substance: AMPICILLIN
  11. GABAPENTIN. [Concomitant]
     Active Substance: GABAPENTIN
  12. GIANVI [Suspect]
     Active Substance: DROSPIRENONE\ETHINYL ESTRADIOL
  13. ORTHO-NOVUM [Concomitant]
     Active Substance: ETHINYL ESTRADIOL\NORETHINDRONE

REACTIONS (2)
  - Haemorrhagic stroke [None]
  - Embolism arterial [None]

NARRATIVE: CASE EVENT DATE: 20110602
